FAERS Safety Report 11805255 (Version 2)
Quarter: 2016Q3

REPORT INFORMATION
  Report Type: Spontaneous
  Country: GB (occurrence: GB)
  Receive Date: 20151206
  Receipt Date: 20160726
  Transmission Date: 20161109
  Serious: Yes (Hospitalization, Congenital Anomaly, Other)
  Sender: FDA-Public Use
  Company Number: GB-MYLANLABS-2015M1041663

PATIENT

DRUGS (2)
  1. PREGABALIN. [Suspect]
     Active Substance: PREGABALIN
     Dosage: UNK (UNK)
  2. GABAPENTIN. [Suspect]
     Active Substance: GABAPENTIN
     Dosage: UNK (UNK)

REACTIONS (2)
  - Cerebellar haemorrhage [Not Recovered/Not Resolved]
  - Arteriovenous malformation [Not Recovered/Not Resolved]

NARRATIVE: CASE EVENT DATE: 201510
